FAERS Safety Report 9681296 (Version 2)
Quarter: 2013Q4

REPORT INFORMATION
  Report Type: Report from Study
  Country: US (occurrence: US)
  Receive Date: 20131111
  Receipt Date: 20131203
  Transmission Date: 20140711
  Serious: Yes (Hospitalization)
  Sender: FDA-Public Use
  Company Number: US-ACTELION-A-NJ2013-90719

PATIENT
  Age: 61 Year
  Sex: Male

DRUGS (11)
  1. TRACLEER [Suspect]
     Indication: PULMONARY ARTERIAL HYPERTENSION
     Dosage: 125 MG, BID
     Route: 048
     Dates: start: 20100505
  2. BYSTOLIC [Concomitant]
     Dosage: 10 MG, QD
  3. FLONASE [Concomitant]
     Dosage: 1 SPRAY, BID
  4. HYDROCHLOROTHIAZIDE [Concomitant]
     Dosage: 12.5 MG, QD
  5. LEXAPRO [Concomitant]
     Dosage: 10 MG, QD
  6. NEXIUM [Concomitant]
     Dosage: 40 MG, QD
  7. SILODOSIN [Concomitant]
     Dosage: 8 MG, QD
  8. SILDENAFIL [Concomitant]
     Dosage: 60 MG, TID
  9. VERAPAMIL [Concomitant]
     Dosage: 240 MG, QD
  10. XARELTO [Concomitant]
     Dosage: 20 MG, QD
  11. ZETIA [Concomitant]
     Dosage: 10 MG, QD

REACTIONS (6)
  - Coronary artery bypass [Recovered/Resolved]
  - Atrial fibrillation [Recovered/Resolved]
  - Cox-Maze procedure [Recovered/Resolved]
  - Atrioventricular block [Recovered/Resolved]
  - Cardiac pacemaker insertion [Recovered/Resolved]
  - Pneumothorax [Recovered/Resolved]
